FAERS Safety Report 8770731 (Version 1)
Quarter: 2012Q4

REPORT INFORMATION
  Report Type: 
  Country: US (occurrence: US)
  Receive Date: 20120906
  Receipt Date: 20120906
  Transmission Date: 20130627
  Serious: Yes (Death)
  Sender: FDA-Public Use
  Company Number: US-BAYER-2012-090565

PATIENT
  Sex: Male

DRUGS (1)
  1. NEXAVAR [Suspect]
     Indication: HEPATIC NEOPLASM MALIGNANT NON-RESECTABLE
     Dosage: 3-4 weeks
     Route: 048

REACTIONS (2)
  - Infection [Fatal]
  - Exfoliative rash [None]
